FAERS Safety Report 10078669 (Version 1)
Quarter: 2014Q2

REPORT INFORMATION
  Report Type: Spontaneous
  Country: US (occurrence: None)
  Receive Date: 20140414
  Receipt Date: 20140414
  Transmission Date: 20141212
  Serious: Yes (Other)
  Sender: FDA-Public Use
  Company Number: None

PATIENT
  Age: 86 Year
  Sex: Female

DRUGS (1)
  1. SENISPAR [Suspect]
     Indication: ILL-DEFINED DISORDER
     Route: 048
     Dates: start: 20140228

REACTIONS (2)
  - Muscle spasms [None]
  - Peripheral swelling [None]
